FAERS Safety Report 18770024 (Version 2)
Quarter: 2021Q1

REPORT INFORMATION
  Report Type: Spontaneous
  Country: US (occurrence: US)
  Receive Date: 20210122
  Receipt Date: 20210129
  Transmission Date: 20210419
  Serious: Yes (Hospitalization, Other)
  Sender: FDA-Public Use
  Company Number: US-AUROBINDO-AUR-APL-2021-001864

PATIENT
  Age: 69 Year
  Sex: Female

DRUGS (2)
  1. DULOXETINE. [Suspect]
     Active Substance: DULOXETINE
     Indication: FIBROMYALGIA
     Dosage: UNK
     Route: 065
  2. DULOXETINE. [Suspect]
     Active Substance: DULOXETINE
     Indication: DEPRESSION
     Dosage: 60 MILLIGRAM, DAILY
     Route: 065

REACTIONS (6)
  - Atrial tachycardia [Recovered/Resolved]
  - Cyanosis [Recovered/Resolved]
  - Atrial fibrillation [Unknown]
  - Ischaemia [Recovered/Resolved]
  - Hypertension [Recovered/Resolved]
  - Cognitive disorder [Unknown]
